FAERS Safety Report 15357108 (Version 2)
Quarter: 2018Q3

REPORT INFORMATION
  Report Type: Report from Study
  Country: AR (occurrence: AR)
  Receive Date: 20180906
  Receipt Date: 20180920
  Transmission Date: 20181010
  Serious: Yes (Death, Hospitalization)
  Sender: FDA-Public Use
  Company Number: PHHY2018AR086416

PATIENT
  Sex: Male

DRUGS (1)
  1. ENTRESTO [Suspect]
     Active Substance: SACUBITRIL\VALSARTAN
     Indication: CARDIAC FAILURE
     Dosage: 200 MG, BID (MORE THAN A YEAR AGO)
     Route: 065

REACTIONS (4)
  - Pneumonia [Unknown]
  - Pulmonary fibrosis [Fatal]
  - Lung disorder [Fatal]
  - Respiratory failure [Fatal]
